FAERS Safety Report 7532607-7 (Version None)
Quarter: 2011Q2

REPORT INFORMATION
  Report Type: 
  Country: None (occurrence: None)
  Receive Date: 20110608
  Receipt Date: 20110603
  Transmission Date: 20111010
  Serious: Yes (Death, Hospitalization, Other)
  Sender: FDA-Public Use
  Company Number: PHHY2011BR48733

PATIENT
  Sex: Female

DRUGS (2)
  1. DIOVAN HCT [Suspect]
     Indication: HYPERTENSION
     Dosage: 1 DF, (160MG OF VALS AND 2.5 MG OF HYDRO IN THE NIGHT DAILY)
     Route: 048
  2. EXFORGE HCT [Suspect]
     Indication: HYPERTENSION
     Dosage: 1 DF, (160MG OF VALS/12.5 MG OF HYDRO/5 MG OF AMLO IN THE MORNING)
     Route: 048

REACTIONS (5)
  - DEATH [None]
  - HYPERTENSION [None]
  - DIARRHOEA [None]
  - PNEUMONIA [None]
  - RESPIRATORY ARREST [None]
